FAERS Safety Report 5528085-X (Version None)
Quarter: 2007Q4

REPORT INFORMATION
  Report Type: 
  Country: None (occurrence: None)
  Receive Date: 20071121
  Receipt Date: 20071107
  Transmission Date: 20080405
  Serious: Yes (Life-Threatening)
  Sender: FDA-Public Use
  Company Number: S07-FRA-05130-01

PATIENT
  Age: 75 Year
  Sex: Female
  Weight: 80 kg

DRUGS (5)
  1. ESCITALOPRAM [Suspect]
     Indication: DEPRESSION
     Dosage: 30 MG QD PO
     Route: 048
     Dates: start: 20060901, end: 20070101
  2. NOCTAMIDE (LORMETAZEPAM) [Concomitant]
  3. BISOPROLOL FUMARATE [Concomitant]
  4. HYZAAR [Concomitant]
  5. ASPIRIN [Concomitant]

REACTIONS (14)
  - ACUTE CORONARY SYNDROME [None]
  - ANOXIA [None]
  - ARRHYTHMIA [None]
  - BUNDLE BRANCH BLOCK RIGHT [None]
  - CARDIAC ARREST [None]
  - COMA [None]
  - DRUG LEVEL INCREASED [None]
  - DRUG TOXICITY [None]
  - ELECTROCARDIOGRAM QRS COMPLEX PROLONGED [None]
  - HYPERTENSION [None]
  - HYPERTROPHIC CARDIOMYOPATHY [None]
  - HYPOKALAEMIA [None]
  - MALAISE [None]
  - MYDRIASIS [None]
